FAERS Safety Report 18998057 (Version 2)
Quarter: 2021Q1

REPORT INFORMATION
  Report Type: Spontaneous
  Country: US (occurrence: US)
  Receive Date: 20210311
  Receipt Date: 20210327
  Transmission Date: 20210420
  Serious: Yes (Death, Hospitalization, Other)
  Sender: FDA-Public Use
  Company Number: US-009507513-2103USA001861

PATIENT
  Sex: Female

DRUGS (2)
  1. KEYTRUDA [Suspect]
     Active Substance: PEMBROLIZUMAB
     Indication: LEUKAEMIA
     Dosage: UNK
  2. KEYTRUDA [Suspect]
     Active Substance: PEMBROLIZUMAB
     Indication: CERVIX CARCINOMA

REACTIONS (7)
  - Sepsis [Unknown]
  - Life support [Unknown]
  - Malignant neoplasm progression [Unknown]
  - Pneumothorax [Unknown]
  - Death [Fatal]
  - Incorrect route of product administration [Unknown]
  - Renal failure [Unknown]

NARRATIVE: CASE EVENT DATE: 202001
